FAERS Safety Report 7608291-0 (Version None)
Quarter: 2011Q3

REPORT INFORMATION
  Report Type: 
  Country: None (occurrence: None)
  Receive Date: 20110714
  Receipt Date: 20110711
  Transmission Date: 20111222
  Serious: Yes (Other)
  Sender: FDA-Public Use
  Company Number: IT-PFIZER INC-2011157899

PATIENT
  Age: 84 Year
  Sex: Male

DRUGS (11)
  1. XANAX [Suspect]
     Dosage: 0.5MG, DAILY
     Route: 048
     Dates: start: 20100529, end: 20110528
  2. EN [Suspect]
     Dosage: 9 DROPS, DAILY
     Route: 048
     Dates: start: 20110527, end: 20110527
  3. CONGESCOR [Concomitant]
     Dosage: 3.75 MG, UNK
     Route: 065
  4. ALLOPURINOL [Concomitant]
     Dosage: UNK
     Route: 065
  5. MADOPAR [Concomitant]
     Dosage: 3 DF(100 MG+25 MG), UNK
     Route: 065
     Dates: start: 20110521, end: 20110528
  6. LASIX [Concomitant]
     Dosage: 50 MG, UNK
     Route: 065
  7. ENALAPRIL MALEATE [Concomitant]
     Dosage: 10 MG, UNK
     Route: 065
  8. MADOPAR [Concomitant]
     Dosage: 1.5, UNK
     Route: 065
     Dates: start: 20100521, end: 20110520
  9. SEROQUEL [Suspect]
     Dosage: 25MG, DAILY
     Route: 048
     Dates: start: 20110526, end: 20110528
  10. ACETYLSALICYLIC ACID [Concomitant]
     Dosage: UNK
     Route: 065
  11. PANTOPRAZOLE SODIUM [Concomitant]
     Dosage: 20 MG, UNK
     Route: 065

REACTIONS (3)
  - HYPOTENSION [None]
  - LOSS OF CONSCIOUSNESS [None]
  - SOPOR [None]
